FAERS Safety Report 24852685 (Version 1)
Quarter: 2025Q1

REPORT INFORMATION
  Report Type: Spontaneous
  Country: US (occurrence: US)
  Receive Date: 20250116
  Receipt Date: 20250116
  Transmission Date: 20250409
  Serious: No
  Sender: SK LIFE SCIENCE
  Company Number: US-SK LIFE SCIENCE, INC-SKPVG-2024-002723

PATIENT

DRUGS (11)
  1. XCOPRI [Suspect]
     Active Substance: CENOBAMATE
     Indication: Seizure
     Route: 048
     Dates: start: 2024, end: 20241101
  2. XCOPRI [Suspect]
     Active Substance: CENOBAMATE
     Indication: Tremor
     Dosage: 250 MILLIGRAM, ONCE DAILY
     Route: 048
     Dates: end: 202411
  3. GABAPENTIN [Concomitant]
     Active Substance: GABAPENTIN
     Indication: Seizure
     Route: 065
  4. LORATADINE [Concomitant]
     Active Substance: LORATADINE
     Indication: Pain
     Route: 065
  5. LORATADINE [Concomitant]
     Active Substance: LORATADINE
     Indication: Aura
  6. SUCRALFATE [Concomitant]
     Active Substance: SUCRALFATE
     Indication: Gastrointestinal disorder
     Dosage: 1G TABLET 4 TIMES DAILY
     Route: 065
  7. DULOXETINE [Concomitant]
     Active Substance: DULOXETINE
     Indication: Product used for unknown indication
     Dosage: 30 MILLIGRAM, BID
     Route: 065
  8. PANTOPRAZOLE [Concomitant]
     Active Substance: PANTOPRAZOLE
     Indication: Product used for unknown indication
     Dosage: 40 MILLIGRAM, BID
     Route: 065
  9. ZOLPIDEM [Concomitant]
     Active Substance: ZOLPIDEM TARTRATE
     Indication: Product used for unknown indication
     Dosage: 10MG TABLET, 1 TABLET DAILY AT BEDTIME
     Route: 065
  10. LISINOPRIL [Concomitant]
     Active Substance: LISINOPRIL
     Indication: Product used for unknown indication
     Dosage: 10 MILLIGRAM, 1 DAILY
     Route: 065
  11. COLESTIPOL [Concomitant]
     Active Substance: COLESTIPOL
     Indication: Product used for unknown indication
     Dosage: 1G TABLET 4 TIMES DAILY
     Route: 065

REACTIONS (4)
  - Product dose omission issue [Not Recovered/Not Resolved]
  - Product dose omission issue [Recovered/Resolved]
  - Product use in unapproved indication [Unknown]
  - Off label use [Recovered/Resolved]

NARRATIVE: CASE EVENT DATE: 20241101
